FAERS Safety Report 7232591-X (Version None)
Quarter: 2011Q1

REPORT INFORMATION
  Report Type: 
  Country: None (occurrence: None)
  Receive Date: 20110119
  Receipt Date: 20110106
  Transmission Date: 20110831
  Serious: Yes (Hospitalization)
  Sender: FDA-Public Use
  Company Number: PHFR2010GB05833

PATIENT
  Sex: Male

DRUGS (4)
  1. LYMECYCLINE [Concomitant]
     Indication: ACNE
     Dosage: UNK
     Route: 048
  2. SYMBICORT [Concomitant]
     Indication: ASTHMA
     Dosage: 1 DF, BID
  3. CLOZARIL [Suspect]
     Indication: SCHIZOPHRENIA
     Dosage: UNK
     Route: 048
     Dates: start: 20101111
  4. VALPROATE SEMISODIUM [Concomitant]
     Indication: AFFECTIVE DISORDER
     Dosage: 750 MG, BID
     Route: 048
     Dates: start: 20100801

REACTIONS (6)
  - MALAISE [None]
  - C-REACTIVE PROTEIN INCREASED [None]
  - MONOCYTE COUNT INCREASED [None]
  - EOSINOPHIL COUNT INCREASED [None]
  - NEUTROPHIL COUNT INCREASED [None]
  - DIFFERENTIAL WHITE BLOOD CELL COUNT ABNORMAL [None]
